FAERS Safety Report 8155915-8 (Version None)
Quarter: 2012Q1

REPORT INFORMATION
  Report Type: 
  Country: None (occurrence: None)
  Receive Date: 20120221
  Receipt Date: 20120221
  Transmission Date: 20120608
  Serious: Yes (Other)
  Sender: FDA-Public Use
  Company Number: None

PATIENT
  Sex: Female
  Weight: 83.0083 kg

DRUGS (2)
  1. CYMBALTA [Suspect]
     Indication: ARTHRALGIA
     Dosage: 60 MG DAILY ORAL
     Route: 048
     Dates: start: 20111001, end: 20120123
  2. CYMBALTA [Suspect]
     Indication: DEPRESSION
     Dosage: 60 MG DAILY ORAL
     Route: 048
     Dates: start: 20111001, end: 20120123

REACTIONS (5)
  - MOBILITY DECREASED [None]
  - BALANCE DISORDER [None]
  - SLEEP DISORDER [None]
  - VERTIGO [None]
  - PARAESTHESIA [None]
